FAERS Safety Report 8107171-4 (Version None)
Quarter: 2011Q4

REPORT INFORMATION
  Report Type: 
  Country: None (occurrence: None)
  Receive Date: 20111227
  Receipt Date: 20110908
  Transmission Date: 20120403
  Serious: No
  Sender: FDA-Public Use
  Company Number: PHEH2011US03885

PATIENT
  Sex: Female

DRUGS (2)
  1. REBIF [Suspect]
  2. GILENYA [Suspect]
     Dosage: 0.5 MG, QD

REACTIONS (2)
  - HALLUCINATION, AUDITORY [None]
  - MENSTRUATION DELAYED [None]
